FAERS Safety Report 7435437-X (Version None)
Quarter: 2011Q2

REPORT INFORMATION
  Report Type: 
  Country: None (occurrence: None)
  Receive Date: 20110425
  Receipt Date: 20110414
  Transmission Date: 20111010
  Serious: Yes (Hospitalization)
  Sender: FDA-Public Use
  Company Number: US-MERCK-1102USA01526

PATIENT
  Age: 66 Year
  Sex: Female
  Weight: 70 kg

DRUGS (4)
  1. LISINOPRIL [Concomitant]
     Route: 065
     Dates: start: 19950101
  2. FOSAMAX [Suspect]
     Indication: OSTEOARTHRITIS
     Route: 048
     Dates: start: 20050118, end: 20080401
  3. ALENDRONATE SODIUM [Suspect]
     Route: 065
     Dates: start: 20080201
  4. FOSAMAX [Suspect]
     Indication: OSTEOPENIA
     Route: 048
     Dates: start: 20050118, end: 20080401

REACTIONS (21)
  - EXOSTOSIS [None]
  - BRONCHITIS [None]
  - GINGIVITIS [None]
  - ACTINOMYCES TEST POSITIVE [None]
  - WOUND DEHISCENCE [None]
  - HAEMATOCHEZIA [None]
  - TYPE 2 DIABETES MELLITUS [None]
  - PRURITUS GENITAL [None]
  - ORAL INFECTION [None]
  - ORAL DISORDER [None]
  - OSTEONECROSIS OF JAW [None]
  - DENTAL CARIES [None]
  - PERIODONTITIS [None]
  - DIARRHOEA [None]
  - NAUSEA [None]
  - UPPER RESPIRATORY TRACT INFECTION [None]
  - DEVICE FAILURE [None]
  - BONE DENSITY DECREASED [None]
  - JAW CYST [None]
  - BACTERIAL INFECTION [None]
  - HYPERSENSITIVITY [None]
